FAERS Safety Report 12331694 (Version 1)
Quarter: 2016Q2

REPORT INFORMATION
  Report Type: Spontaneous
  Country: GR (occurrence: GR)
  Receive Date: 20160504
  Receipt Date: 20160504
  Transmission Date: 20160902
  Serious: Yes (Other)
  Sender: FDA-Public Use
  Company Number: GR-PFIZER INC-2016240270

PATIENT
  Age: 81 Year
  Sex: Male

DRUGS (2)
  1. AMIODARONE HCL [Suspect]
     Active Substance: AMIODARONE HYDROCHLORIDE
     Dosage: UNK
     Route: 065
  2. APIXABAN [Concomitant]
     Active Substance: APIXABAN
     Indication: ATRIAL FIBRILLATION
     Dosage: UNK

REACTIONS (3)
  - Pleural effusion [Unknown]
  - Gastrointestinal disorder [Unknown]
  - Adenocarcinoma [Unknown]
